FAERS Safety Report 5407478-5 (Version None)
Quarter: 2007Q3

REPORT INFORMATION
  Report Type: 
  Country: None (occurrence: None)
  Receive Date: 20070807
  Receipt Date: 20070726
  Transmission Date: 20080115
  Serious: Yes (Other)
  Sender: FDA-Public Use
  Company Number: GB-ELI_LILLY_AND_COMPANY-GB200707006412

PATIENT
  Age: 73 Year
  Sex: Male

DRUGS (7)
  1. CYMBALTA [Suspect]
     Indication: DEPRESSION
     Dosage: 30 MG, DAILY (1/D)
     Route: 048
     Dates: start: 20070711, end: 20070718
  2. ASPIRIN [Concomitant]
     Indication: CARDIOVASCULAR EVENT PROPHYLAXIS
     Dosage: 75 MG, DAILY (1/D)
     Route: 048
     Dates: start: 20021218
  3. LORAZEPAM [Concomitant]
     Indication: ANXIETY
     Dosage: 1 MG, 3/D
     Route: 048
     Dates: start: 20051014
  4. ACETAMINOPHEN [Concomitant]
     Indication: HEADACHE
     Dosage: 1 G, AS NEEDED
     Route: 048
     Dates: start: 20070716
  5. SALBUTAMOL [Concomitant]
     Indication: ASTHMA
     Dosage: 200 UG, AS NEEDED
     Route: 055
     Dates: start: 20070411
  6. SIMVASTATIN [Concomitant]
     Indication: HYPERCHOLESTEROLAEMIA
     Dosage: 20 MG, DAILY (1/D)
     Route: 048
     Dates: start: 20060704
  7. TEMAZEPAM [Concomitant]
     Indication: INSOMNIA
     Dosage: 10 MG, DAILY (1/D)
     Route: 048
     Dates: start: 20050803

REACTIONS (1)
  - TRANSIENT ISCHAEMIC ATTACK [None]
